FAERS Safety Report 5294942-5 (Version None)
Quarter: 2007Q2

REPORT INFORMATION
  Report Type: 
  Country: None (occurrence: None)
  Receive Date: 20070412
  Receipt Date: 20060327
  Transmission Date: 20071010
  Serious: Yes (Other)
  Sender: FDA-Public Use
  Company Number: 200420189GDDC

PATIENT
  Age: 57 Year
  Sex: Male

DRUGS (10)
  1. NICORETTE [Suspect]
     Indication: SMOKING CESSATION THERAPY
     Dosage: 2MG SEE DOSAGE TEXT
     Route: 002
     Dates: start: 20030413
  2. NICOTINE PATCHES [Suspect]
     Indication: SMOKING CESSATION THERAPY
  3. ANTIHYPERTENSIVE [Concomitant]
  4. DIAZEPAM [Concomitant]
     Indication: ANXIETY
  5. MIGRAINE MEDICATION [Concomitant]
     Route: 048
  6. ACETAMINOPHEN W/ CODEINE [Concomitant]
     Route: 048
  7. DOXAZOSIN MESYLATE [Concomitant]
     Route: 048
  8. BENDROFLUAZIDE [Concomitant]
     Route: 048
  9. LOSARTAN POSTASSIUM [Concomitant]
     Indication: BLADDER DISORDER
  10. FLUPENTIXOL DIHYDROCHLORIDE [Concomitant]
     Indication: DEPRESSION
     Route: 048

REACTIONS (7)
  - DEPENDENCE [None]
  - EAR DISCOMFORT [None]
  - FALL [None]
  - FEELING ABNORMAL [None]
  - MEDICATION ERROR [None]
  - OVERDOSE [None]
  - WHIPLASH INJURY [None]
